FAERS Safety Report 10968261 (Version 1)
Quarter: 2015Q1

REPORT INFORMATION
  Report Type: Spontaneous
  Country: US (occurrence: US)
  Receive Date: 20150330
  Receipt Date: 20150330
  Transmission Date: 20150721
  Serious: No
  Sender: FDA-Public Use
  Company Number: US-GILEAD-2015-0143744

PATIENT
  Age: 53 Year
  Sex: Female

DRUGS (1)
  1. HARVONI [Suspect]
     Active Substance: LEDIPASVIR\SOFOSBUVIR
     Indication: PRODUCT USED FOR UNKNOWN INDICATION
     Dosage: UNK
     Route: 065
     Dates: start: 20150128

REACTIONS (7)
  - Pain [Unknown]
  - Influenza like illness [Unknown]
  - Ear pain [Unknown]
  - Energy increased [Unknown]
  - Oropharyngeal pain [Unknown]
  - Pruritus [Recovered/Resolved]
  - Hepatitis C virus test positive [Unknown]

NARRATIVE: CASE EVENT DATE: 20150223
